FAERS Safety Report 11844074 (Version 1)
Quarter: 2015Q4

REPORT INFORMATION
  Report Type: Spontaneous
  Country: US (occurrence: None)
  Receive Date: 20151216
  Receipt Date: 20151216
  Transmission Date: 20160305
  Serious: No
  Sender: FDA-Public Use
  Company Number: None

PATIENT
  Age: 69 Year
  Sex: Female

DRUGS (9)
  1. OMEPRAZOLE. [Concomitant]
     Active Substance: OMEPRAZOLE
  2. FASLODEX [Concomitant]
     Active Substance: FULVESTRANT
  3. ESCITALOPRAM [Concomitant]
     Active Substance: ESCITALOPRAM OXALATE
  4. IBRANCE [Suspect]
     Active Substance: PALBOCICLIB
     Indication: BREAST CANCER
     Dosage: 125MG  DAILY X 21  PO
     Route: 048
     Dates: start: 20151205
  5. BENICAR [Concomitant]
     Active Substance: OLMESARTAN MEDOXOMIL
  6. SIMVASTATIN. [Concomitant]
     Active Substance: SIMVASTATIN
  7. ALPROZOLAM [Concomitant]
     Active Substance: ALPRAZOLAM
  8. EXEMESTANE. [Concomitant]
     Active Substance: EXEMESTANE
  9. MELOXICAM. [Concomitant]
     Active Substance: MELOXICAM

REACTIONS (4)
  - Headache [None]
  - Diarrhoea [None]
  - Nausea [None]
  - Constipation [None]

NARRATIVE: CASE EVENT DATE: 201512
